FAERS Safety Report 15193793 (Version 1)
Quarter: 2018Q3

REPORT INFORMATION
  Report Type: Spontaneous
  Country: US (occurrence: US)
  Receive Date: 20180725
  Receipt Date: 20180725
  Transmission Date: 20181010
  Serious: Yes (Hospitalization, Other)
  Sender: FDA-Public Use
  Company Number: US-SA-2018SA194020

PATIENT
  Age: 64 Year
  Sex: Female

DRUGS (5)
  1. PLAQUENIL [HYDROXYCHLOROQUINE PHOSPHATE] [Suspect]
     Active Substance: HYDROXYCHLOROQUINE DIPHOSPHATE
  2. METHOTREXATE. [Suspect]
     Active Substance: METHOTREXATE
     Dosage: UNK
     Dates: start: 201502, end: 201511
  3. ENBREL [Suspect]
     Active Substance: ETANERCEPT
     Dosage: UNK UNK, UNK
     Dates: start: 201510, end: 201511
  4. TOPROL XL [Concomitant]
     Active Substance: METOPROLOL SUCCINATE
     Dosage: UNK
     Dates: start: 2004
  5. ARAVA [Suspect]
     Active Substance: LEFLUNOMIDE
     Dosage: UNK
     Dates: start: 201503

REACTIONS (10)
  - Unevaluable event [Unknown]
  - Palpitations [None]
  - Tinnitus [None]
  - Drug intolerance [Unknown]
  - Rheumatoid arthritis [Unknown]
  - Tachycardia [None]
  - Atrial fibrillation [Unknown]
  - Hypertension [Unknown]
  - Drug hypersensitivity [Unknown]
  - Rheumatoid arthritis [None]

NARRATIVE: CASE EVENT DATE: 2015
